FAERS Safety Report 9220817 (Version 2)
Quarter: 2013Q4

REPORT INFORMATION
  Report Type: Spontaneous
  Country: GB (occurrence: GB)
  Receive Date: 20130409
  Receipt Date: 20131014
  Transmission Date: 20140711
  Serious: Yes (Hospitalization)
  Sender: FDA-Public Use
  Company Number: GB-TEVA-396232ISR

PATIENT
  Age: 8 Decade
  Sex: Female

DRUGS (12)
  1. DOXAZOSIN [Suspect]
     Dates: start: 200710
  2. DOXAZOSIN [Suspect]
  3. AMLODIPINE [Suspect]
  4. FUROSEMIDE [Suspect]
  5. BISOPROLOL [Suspect]
  6. CITALOPRAM [Suspect]
     Indication: DEPRESSION
     Dates: start: 201207
  7. ATENOLOL [Suspect]
     Indication: HYPERTENSION
     Dates: start: 201209
  8. ATENOLOL [Suspect]
  9. TELMISARTAN [Suspect]
  10. TELMISARTAN [Suspect]
     Dates: start: 200710
  11. ASPIRIN [Suspect]
  12. ANTIBIOTICS NOS [Concomitant]
     Dosage: OCCASSIONAL

REACTIONS (7)
  - Dyspnoea [Unknown]
  - Pulmonary congestion [Unknown]
  - Fluid overload [Unknown]
  - Oedema [Unknown]
  - Weight loss poor [Unknown]
  - Blood cholesterol increased [Unknown]
  - Low density lipoprotein increased [Unknown]
